FAERS Safety Report 13181829 (Version 2)
Quarter: 2017Q2

REPORT INFORMATION
  Report Type: Spontaneous
  Country: US (occurrence: US)
  Receive Date: 20170202
  Receipt Date: 20170502
  Transmission Date: 20170830
  Serious: No
  Sender: FDA-Public Use
  Company Number: US-IMPAX LABORATORIES, INC-2016-IPXL-01457

PATIENT
  Age: 77 Year
  Sex: Female

DRUGS (1)
  1. RYTARY [Suspect]
     Active Substance: CARBIDOPA\LEVODOPA
     Indication: PARKINSON^S DISEASE
     Dosage: (23.75/95 MG) ONE CAPSULE, TID
     Route: 048

REACTIONS (3)
  - Drug ineffective [Unknown]
  - Balance disorder [Unknown]
  - Freezing phenomenon [Unknown]
